FAERS Safety Report 15170693 (Version 1)
Quarter: 2018Q3

REPORT INFORMATION
  Report Type: Spontaneous
  Country: US (occurrence: US)
  Receive Date: 20180622
  Receipt Date: 20180622
  Transmission Date: 20181010
  Serious: No
  Sender: FDA-Public Use
  Company Number: None

PATIENT
  Age: 58 Year
  Sex: Female

DRUGS (2)
  1. IBRANCE [Suspect]
     Active Substance: PALBOCICLIB
     Indication: METASTASES TO BONE
     Dosage: 125MG DAILY FOR 21 OF 28 DAYS ORAL
     Route: 048
     Dates: start: 20171208
  2. IBRANCE [Suspect]
     Active Substance: PALBOCICLIB
     Indication: BREAST CANCER FEMALE
     Dosage: 125MG DAILY FOR 21 OF 28 DAYS ORAL
     Route: 048
     Dates: start: 20171208

REACTIONS (1)
  - Alopecia [None]

NARRATIVE: CASE EVENT DATE: 20180601
